FAERS Safety Report 4319994-8 (Version None)
Quarter: 2004Q1

REPORT INFORMATION
  Report Type: 
  Country: None (occurrence: None)
  Receive Date: 20040317
  Receipt Date: 20040309
  Transmission Date: 20041129
  Serious: Yes (Other)
  Sender: FDA-Public Use
  Company Number: US-JNJFOC-20040302294

PATIENT
  Age: 58 Year
  Sex: Female
  Weight: 90.7194 kg

DRUGS (7)
  1. TOPAMAX [Suspect]
     Indication: MIGRAINE
     Dosage: 150 MG, IN 1 DAY, ORAL
     Route: 048
  2. ATENOLOL [Concomitant]
  3. CARDIZEM [Concomitant]
  4. LEXAPRO (ALL OTHER THERAPEUTIC PRODUCTS) [Concomitant]
  5. ZOCOR [Concomitant]
  6. VIOXX [Concomitant]
  7. PREVACID [Concomitant]

REACTIONS (2)
  - CEREBROVASCULAR ACCIDENT [None]
  - HEADACHE [None]
